FAERS Safety Report 15338447 (Version 2)
Quarter: 2018Q4

REPORT INFORMATION
  Report Type: Spontaneous
  Country: DE (occurrence: DE)
  Receive Date: 20180831
  Receipt Date: 20181001
  Transmission Date: 20190204
  Serious: Yes (Other)
  Sender: FDA-Public Use
  Company Number: DE-BRISTOL-MYERS SQUIBB COMPANY-BMS-2018-078832

PATIENT
  Age: 17 Year
  Sex: Male
  Weight: 71 kg

DRUGS (2)
  1. SPRYCEL [Suspect]
     Active Substance: DASATINIB
     Indication: PRODUCT USED FOR UNKNOWN INDICATION
     Dosage: UNK
     Route: 065
     Dates: start: 20180907
  2. SPRYCEL [Suspect]
     Active Substance: DASATINIB
     Indication: CHRONIC MYELOID LEUKAEMIA
     Dosage: 100 MG, QD
     Route: 065
     Dates: start: 201705

REACTIONS (7)
  - Myalgia [Unknown]
  - Colitis ulcerative [Unknown]
  - Gastritis [Unknown]
  - Enterocolitis haemorrhagic [Unknown]
  - Campylobacter infection [Unknown]
  - Lipase increased [Unknown]
  - Infectious colitis [Unknown]

NARRATIVE: CASE EVENT DATE: 201807
